FAERS Safety Report 15865652 (Version 2)
Quarter: 2019Q2

REPORT INFORMATION
  Report Type: Spontaneous
  Country: CA (occurrence: CA)
  Receive Date: 20190125
  Receipt Date: 20190528
  Transmission Date: 20190711
  Serious: Yes (Other)
  Sender: FDA-Public Use
  Company Number: CA-ROCHE-2248200

PATIENT
  Sex: Female

DRUGS (17)
  1. DIPHENHYDRAMINE HCL [Concomitant]
     Active Substance: DIPHENHYDRAMINE HYDROCHLORIDE
     Indication: PREMEDICATION
     Route: 048
     Dates: start: 20190104
  2. PANTOPRAZOLE [Concomitant]
     Active Substance: PANTOPRAZOLE
  3. RAMIPRIL. [Concomitant]
     Active Substance: RAMIPRIL
  4. VITAMIN C [Concomitant]
     Active Substance: ASCORBIC ACID
  5. TRAMADOL. [Concomitant]
     Active Substance: TRAMADOL
  6. NYSTATIN. [Concomitant]
     Active Substance: NYSTATIN
  7. METHYLPREDNISOLONE. [Concomitant]
     Active Substance: METHYLPREDNISOLONE
     Indication: PREMEDICATION
     Route: 042
     Dates: start: 20190104
  8. RITUXAN [Suspect]
     Active Substance: RITUXIMAB
     Indication: SJOGREN^S SYNDROME
     Route: 042
     Dates: start: 20190104
  9. ACYCLOVIR [ACICLOVIR] [Concomitant]
     Active Substance: ACYCLOVIR
  10. METHOTREXATE. [Concomitant]
     Active Substance: METHOTREXATE
  11. AMLODIPINE [Concomitant]
     Active Substance: AMLODIPINE BESYLATE
  12. RITUXAN [Suspect]
     Active Substance: RITUXIMAB
     Indication: RAYNAUD^S PHENOMENON
  13. ACETAMINOPHEN. [Concomitant]
     Active Substance: ACETAMINOPHEN
     Indication: PREMEDICATION
     Route: 048
     Dates: start: 20190104
  14. CELLCEPT [Suspect]
     Active Substance: MYCOPHENOLATE MOFETIL\MYCOPHENOLATE MOFETIL HYDROCHLORIDE
     Indication: PRODUCT USED FOR UNKNOWN INDICATION
     Route: 065
  15. URSODIOL. [Concomitant]
     Active Substance: URSODIOL
  16. ALENDRONATE [Concomitant]
     Active Substance: ALENDRONATE SODIUM
  17. ESCITALOPRAM [Concomitant]
     Active Substance: ESCITALOPRAM OXALATE

REACTIONS (4)
  - Drug hypersensitivity [Not Recovered/Not Resolved]
  - Mixed connective tissue disease [Unknown]
  - Primary biliary cholangitis [Unknown]
  - Autoimmune disorder [Unknown]
